FAERS Safety Report 8525898-7 (Version None)
Quarter: 2012Q3

REPORT INFORMATION
  Report Type: 
  Country: None (occurrence: None)
  Receive Date: 20120720
  Receipt Date: 20120712
  Transmission Date: 20120928
  Serious: Yes (Death)
  Sender: FDA-Public Use
  Company Number: PL-BAXTER-2012BAX011207

PATIENT
  Age: 74 Year
  Sex: Female

DRUGS (5)
  1. DIANEAL PD-1 W/ DEXTROSE 2.5% IN PLASTIC CONTAINER [Suspect]
  2. DIANEAL PD-1 W/ DEXTROSE 2.5% IN PLASTIC CONTAINER [Suspect]
     Indication: PERITONEAL DIALYSIS
     Route: 033
  3. EXTRANEAL [Suspect]
  4. EXTRANEAL [Suspect]
     Indication: PERITONEAL DIALYSIS
     Route: 033
  5. NUTRINEAL [Suspect]
     Indication: PERITONEAL DIALYSIS
     Route: 033

REACTIONS (1)
  - DIABETES MELLITUS [None]
